FAERS Safety Report 4518043-6 (Version None)
Quarter: 2004Q4

REPORT INFORMATION
  Report Type: 
  Country: None (occurrence: None)
  Receive Date: 20041130
  Receipt Date: 20041115
  Transmission Date: 20050328
  Serious: Yes (Hospitalization)
  Sender: FDA-Public Use
  Company Number: 2004-122526-NL

PATIENT
  Age: 39 Year
  Sex: Female

DRUGS (2)
  1. FOLLITROPIN BETA [Suspect]
     Dosage: 75 IU
     Dates: start: 20041011, end: 20041022
  2. FOLLITROPIN BETA [Suspect]
     Dosage: 75 IU
     Dates: start: 20041110

REACTIONS (3)
  - HAEMATOMA [None]
  - PHARMACEUTICAL PRODUCT COMPLAINT [None]
  - VARICOSE VEIN RUPTURED [None]
